FAERS Safety Report 7570772-6 (Version None)
Quarter: 2011Q2

REPORT INFORMATION
  Report Type: 
  Country: None (occurrence: None)
  Receive Date: 20110624
  Receipt Date: 20110614
  Transmission Date: 20111010
  Serious: Yes (Hospitalization)
  Sender: FDA-Public Use
  Company Number: JP-ELI_LILLY_AND_COMPANY-JP201106001157

PATIENT
  Age: 76 Year
  Sex: Female

DRUGS (1)
  1. HUMALOG MIX 50/50 [Suspect]
     Indication: HYPERGLYCAEMIA
     Dosage: 16 IU, QD
     Route: 058
     Dates: start: 20090804, end: 20110601

REACTIONS (2)
  - HYPERGLYCAEMIA [None]
  - ANTI-INSULIN ANTIBODY POSITIVE [None]
